FAERS Safety Report 5612594-9 (Version None)
Quarter: 2008Q1

REPORT INFORMATION
  Report Type: 
  Country: None (occurrence: None)
  Receive Date: 20080204
  Receipt Date: 20080201
  Transmission Date: 20080703
  Serious: Yes (Other)
  Sender: FDA-Public Use
  Company Number: A0707223A

PATIENT
  Age: 24 Year
  Sex: Male
  Weight: 55 kg

DRUGS (2)
  1. ZINNAT [Suspect]
     Indication: PNEUMONIA
     Dosage: 10ML TWICE PER DAY
     Route: 048
  2. AMBROXOL HYDROCHLORIDE [Concomitant]

REACTIONS (1)
  - PNEUMONIA [None]
